FAERS Safety Report 8486229-4 (Version None)
Quarter: 2012Q3

REPORT INFORMATION
  Report Type: 
  Country: None (occurrence: None)
  Receive Date: 20120703
  Receipt Date: 20120702
  Transmission Date: 20120928
  Serious: Yes (Death)
  Sender: FDA-Public Use
  Company Number: US-ELI_LILLY_AND_COMPANY-US201202005744

PATIENT
  Age: 70 Year
  Sex: Male

DRUGS (3)
  1. EFFIENT [Suspect]
     Indication: ACUTE MYOCARDIAL INFARCTION
     Dosage: 60 MG, SINGLE
  2. EFFIENT [Suspect]
     Dosage: 10 MG, QD
  3. HEPARIN SODIUM [Concomitant]
     Indication: ANTICOAGULANT THERAPY

REACTIONS (1)
  - HAEMORRHAGE INTRACRANIAL [None]
